FAERS Safety Report 7979512-X (Version None)
Quarter: 2011Q4

REPORT INFORMATION
  Report Type: 
  Country: None (occurrence: None)
  Receive Date: 20111214
  Receipt Date: 20111205
  Transmission Date: 20120403
  Serious: Yes (Other)
  Sender: FDA-Public Use
  Company Number: PHHY2011US11406

PATIENT
  Sex: Female
  Weight: 64.86 kg

DRUGS (3)
  1. EXJADE [Suspect]
     Dosage: 500 MG, DAILY
     Route: 048
     Dates: start: 20080701
  2. EXJADE [Suspect]
     Dosage: 2000 MG, QD
     Route: 048
  3. EXJADE [Suspect]
     Indication: IRON METABOLISM DISORDER
     Dosage: 500 MG, TID
     Route: 048
     Dates: start: 20080708

REACTIONS (4)
  - DIARRHOEA [None]
  - HAEMORRHAGE [None]
  - COLITIS ISCHAEMIC [None]
  - RASH PRURITIC [None]
